FAERS Safety Report 24454316 (Version 2)
Quarter: 2024Q4

REPORT INFORMATION
  Report Type: Report from Study
  Country: US (occurrence: US)
  Receive Date: 20241017
  Receipt Date: 20241018
  Transmission Date: 20250114
  Serious: No
  Sender: ROCHE
  Company Number: US-ROCHE-3404298

PATIENT
  Age: 68 Year
  Sex: Female

DRUGS (3)
  1. RITUXAN [Suspect]
     Active Substance: RITUXIMAB
     Indication: Congenital anomaly
     Dosage: DATE OF SERVICE: 13/APR/2021, 23/MAY/2023, 04/MAY/2023, 10/OCT/2022, 22/MAR/2022, 07/MAR/2022, 11/OC
     Route: 065
  2. RITUXAN [Suspect]
     Active Substance: RITUXIMAB
     Indication: Vasculitis necrotising
  3. RITUXAN [Suspect]
     Active Substance: RITUXIMAB
     Indication: Lupus nephritis

REACTIONS (2)
  - Off label use [Unknown]
  - Malaise [Unknown]
